FAERS Safety Report 4321778-1 (Version None)
Quarter: 2004Q1

REPORT INFORMATION
  Report Type: 
  Country: None (occurrence: None)
  Receive Date: 20040322
  Receipt Date: 20031212
  Transmission Date: 20041129
  Serious: No
  Sender: FDA-Public Use
  Company Number: US-BRISTOL-MYERS SQUIBB COMPANY-12469409

PATIENT
  Age: 54 Year
  Sex: Female
  Weight: 67 kg

DRUGS (1)
  1. VAGISTAT-1 [Suspect]
     Indication: VAGINAL MYCOSIS
     Dosage: USED ONCE ON 12-NOV-03 AND ONCE ON 24-NOV-03.
     Route: 067
     Dates: start: 20031112, end: 20031124

REACTIONS (1)
  - DRUG INEFFECTIVE [None]
